FAERS Safety Report 5342642-5 (Version None)
Quarter: 2007Q2

REPORT INFORMATION
  Report Type: 
  Country: None (occurrence: None)
  Receive Date: 20070601
  Receipt Date: 20070514
  Transmission Date: 20071010
  Serious: Yes (Disabling, Other)
  Sender: FDA-Public Use
  Company Number: DE-BOEHRINGER INGELHEIM PHARMACEUTICALS, INC.-2007-DE-01105DE

PATIENT
  Age: 58 Year
  Sex: Female

DRUGS (1)
  1. SPIRIVA [Suspect]
     Dates: start: 20020101

REACTIONS (14)
  - ABDOMINAL PAIN [None]
  - ARRHYTHMIA [None]
  - ASTHENIA [None]
  - CARDIAC DISORDER [None]
  - CHEST DISCOMFORT [None]
  - DIZZINESS [None]
  - DIZZINESS POSTURAL [None]
  - DYSPNOEA [None]
  - HEART RATE ABNORMAL [None]
  - HYPERHIDROSIS [None]
  - MYOCARDIAL INFARCTION [None]
  - PULMONARY EMBOLISM [None]
  - SYNCOPE [None]
  - TREMOR [None]
